FAERS Safety Report 22143012 (Version 1)
Quarter: 2023Q1

REPORT INFORMATION
  Report Type: Spontaneous
  Country: GB (occurrence: GB)
  Receive Date: 20230327
  Receipt Date: 20230327
  Transmission Date: 20230417
  Serious: Yes (Hospitalization, Other)
  Sender: FDA-Public Use
  Company Number: GB-AMGEN-GBRSP2023048983

PATIENT
  Sex: Male

DRUGS (1)
  1. ARANESP [Suspect]
     Active Substance: DARBEPOETIN ALFA
     Indication: Renal disorder
     Dosage: 80 MICROGRAM/0.4ML, QMO
     Route: 065

REACTIONS (3)
  - Urinary bladder haemorrhage [Unknown]
  - Pneumonia [Unknown]
  - Cardiac failure [Unknown]
